FAERS Safety Report 4277753-9 (Version None)
Quarter: 2004Q1

REPORT INFORMATION
  Report Type: 
  Country: None (occurrence: None)
  Receive Date: 20040121
  Receipt Date: 20040112
  Transmission Date: 20041129
  Serious: No
  Sender: FDA-Public Use
  Company Number: 2004AP00147

PATIENT
  Age: 50 Year
  Sex: Male

DRUGS (5)
  1. PROPOFOL [Suspect]
     Indication: ANAESTHESIA
  2. FENTANYL [Suspect]
     Indication: ANALGESIC EFFECT
  3. ROCURONIUM [Suspect]
     Indication: MUSCLE RELAXANT THERAPY
  4. ISOFLURANE [Suspect]
     Indication: ANAESTHESIA
  5. METARAMINOL [Concomitant]

REACTIONS (3)
  - HYPERTHERMIA MALIGNANT [None]
  - HYPOTENSION [None]
  - PCO2 INCREASED [None]
